FAERS Safety Report 7032691-3 (Version None)
Quarter: 2010Q4

REPORT INFORMATION
  Report Type: 
  Country: None (occurrence: None)
  Receive Date: 20101007
  Receipt Date: 20100930
  Transmission Date: 20110411
  Serious: Yes (Death, Hospitalization)
  Sender: FDA-Public Use
  Company Number: PHHY2010MX63144

PATIENT
  Sex: Female

DRUGS (2)
  1. EXFORGE [Suspect]
     Dosage: 1 TABLET (160/10 MG) DAILY
     Dates: start: 20100701, end: 20100903
  2. DIGOXIN [Concomitant]

REACTIONS (2)
  - CARDIAC FAILURE [None]
  - RESPIRATORY ARREST [None]
